FAERS Safety Report 24359595 (Version 1)
Quarter: 2024Q3

REPORT INFORMATION
  Report Type: Spontaneous
  Country: US (occurrence: US)
  Receive Date: 20240924
  Receipt Date: 20240924
  Transmission Date: 20241017
  Serious: No
  Sender: SANOFI AVENTIS
  Company Number: US-SA-2024SA271614

PATIENT
  Age: 62 Year
  Sex: Female

DRUGS (1)
  1. DUPIXENT [Suspect]
     Active Substance: DUPILUMAB
     Indication: Nasal polyps
     Dosage: 300 MG, QOW
     Route: 058

REACTIONS (8)
  - Drug hypersensitivity [Recovering/Resolving]
  - Lacrimation increased [Recovering/Resolving]
  - Eye pruritus [Recovering/Resolving]
  - Rhinorrhoea [Recovering/Resolving]
  - Nasal pruritus [Recovering/Resolving]
  - Oral pruritus [Recovering/Resolving]
  - Pruritus [Recovering/Resolving]
  - Urticaria [Recovering/Resolving]
